FAERS Safety Report 12530031 (Version 1)
Quarter: 2016Q3

REPORT INFORMATION
  Report Type: Spontaneous
  Country: US (occurrence: None)
  Receive Date: 20160705
  Receipt Date: 20160705
  Transmission Date: 20161109
  Serious: Yes (Hospitalization)
  Sender: FDA-Public Use
  Company Number: None

PATIENT
  Age: 65 Year
  Sex: Male
  Weight: 134 kg

DRUGS (10)
  1. AMLODIPINE [Concomitant]
     Active Substance: AMLODIPINE BESYLATE
  2. HYDROCHLOROTHIAZIDE. [Concomitant]
     Active Substance: HYDROCHLOROTHIAZIDE
  3. LINAGLIPTIN [Concomitant]
     Active Substance: LINAGLIPTIN
  4. METRONIDAZOLE. [Concomitant]
     Active Substance: METRONIDAZOLE
  5. ALBUTEROL. [Concomitant]
     Active Substance: ALBUTEROL
  6. BACTIM DS [Concomitant]
  7. TIMOLOL. [Concomitant]
     Active Substance: TIMOLOL
  8. ENOXAPARIN, 150 MG [Suspect]
     Active Substance: ENOXAPARIN
     Indication: ANTICOAGULANT THERAPY
     Route: 058
  9. ATORVASTATIN [Concomitant]
     Active Substance: ATORVASTATIN
  10. MAGNESIUM OXIDE. [Concomitant]
     Active Substance: MAGNESIUM OXIDE

REACTIONS (6)
  - Vertigo [None]
  - Haematuria [None]
  - Dizziness [None]
  - Haemoglobin decreased [None]
  - Red blood cell count decreased [None]
  - Injection site haematoma [None]

NARRATIVE: CASE EVENT DATE: 20160608
